FAERS Safety Report 6790342-7 (Version None)
Quarter: 2010Q2

REPORT INFORMATION
  Report Type: 
  Country: None (occurrence: None)
  Receive Date: 20100624
  Receipt Date: 20100610
  Transmission Date: 20101027
  Serious: Yes (Other)
  Sender: FDA-Public Use
  Company Number: PHHY2010DE38533

PATIENT
  Sex: Female

DRUGS (4)
  1. RASILEZ [Suspect]
     Dosage: 150 MG, QD
     Route: 048
     Dates: start: 20091101, end: 20100610
  2. HYDROCHLOROTHIAZIDE [Suspect]
     Dosage: UNK
     Dates: end: 20100610
  3. ACETYLSALICYLIC ACID [Concomitant]
  4. OMEPRAZOLE [Concomitant]

REACTIONS (1)
  - ALVEOLITIS [None]
